FAERS Safety Report 7016141-9 (Version None)
Quarter: 2010Q3

REPORT INFORMATION
  Report Type: 
  Country: None (occurrence: None)
  Receive Date: 20100927
  Receipt Date: 20100923
  Transmission Date: 20110219
  Serious: Yes (Death)
  Sender: FDA-Public Use
  Company Number: FR-WYE-G06293910

PATIENT
  Sex: Male
  Weight: 85 kg

DRUGS (18)
  1. GEMTUZUMAB OZOGAMICIN [Suspect]
     Indication: ACUTE MYELOID LEUKAEMIA
     Dosage: 5 MG PER DAY ON DAY 1, DAY 4 AND DAY 7
     Route: 042
     Dates: start: 20100512, end: 20100518
  2. ARACYTINE [Concomitant]
     Indication: ACUTE MYELOID LEUKAEMIA
     Route: 042
     Dates: start: 20100512, end: 20100519
  3. HYDREA [Concomitant]
     Route: 042
     Dates: start: 20100512, end: 20100512
  4. AXEPIM [Concomitant]
     Route: 042
     Dates: start: 20100604, end: 20100606
  5. AXEPIM [Concomitant]
     Dosage: 6 G TOTAL DAILY
     Route: 042
     Dates: start: 20100515, end: 20100527
  6. AXEPIM [Concomitant]
     Dosage: 3 G TOTAL DAILY
     Route: 042
     Dates: start: 20100528, end: 20100603
  7. NEXIUM [Concomitant]
     Dosage: 40 MG TOTAL DAILY
     Route: 048
     Dates: start: 20100607, end: 20100613
  8. TAREG [Concomitant]
     Dosage: 40 MG TOTAL DAILY
     Route: 048
     Dates: end: 20100526
  9. CLAFORAN [Concomitant]
     Dosage: 6 G TOTAL DAILY
     Route: 042
     Dates: start: 20100507, end: 20100513
  10. ZYVOX [Concomitant]
     Dosage: 1200 MG TOTAL DAILY
     Route: 042
     Dates: start: 20100528, end: 20100603
  11. AMBISOME [Concomitant]
     Dosage: 250 MG TOTAL DAILY
     Route: 042
     Dates: start: 20100524, end: 20100526
  12. NEUPOGEN [Concomitant]
     Dosage: 48 UG TOTAL DAILY
     Route: 042
     Dates: start: 20100530, end: 20100605
  13. LASIX [Concomitant]
     Dosage: 1 G TOTAL DAILY
     Route: 042
     Dates: start: 20100602, end: 20100604
  14. ESOMEPRAZOLE [Concomitant]
     Dosage: 40 MG TOTAL DAILY
     Route: 048
     Dates: start: 20100605, end: 20100606
  15. DAUNORUBICIN HCL [Concomitant]
     Indication: ACUTE MYELOID LEUKAEMIA
     Route: 042
     Dates: start: 20100512, end: 20100514
  16. VFEND [Concomitant]
     Dosage: 800 MG TOTAL DAILY
     Route: 048
     Dates: start: 20100528, end: 20100531
  17. VFEND [Concomitant]
     Dosage: 600 MG TOTAL DAILY
     Route: 048
     Dates: start: 20100601, end: 20100608
  18. VFEND [Concomitant]
     Dosage: 400 MG TOTAL DAILY
     Route: 048
     Dates: start: 20100609

REACTIONS (1)
  - CONDUCTION DISORDER [None]
